FAERS Safety Report 6671540-X (Version None)
Quarter: 2010Q2

REPORT INFORMATION
  Report Type: 
  Country: None (occurrence: None)
  Receive Date: 20100406
  Receipt Date: 20100406
  Transmission Date: 20101027
  Serious: Yes (Other)
  Sender: FDA-Public Use
  Company Number: None

PATIENT
  Age: 47 Year
  Sex: Female
  Weight: 58.9676 kg

DRUGS (1)
  1. ABILIFY [Suspect]
     Indication: DEPRESSION
     Dosage: 30MG 10 WEEKS PO
     Route: 048
     Dates: start: 20100102, end: 20100317

REACTIONS (2)
  - ABASIA [None]
  - MUSCLE RIGIDITY [None]
